FAERS Safety Report 13698326 (Version 2)
Quarter: 2017Q3

REPORT INFORMATION
  Report Type: Spontaneous
  Country: US (occurrence: US)
  Receive Date: 20170628
  Receipt Date: 20170725
  Transmission Date: 20171127
  Serious: Yes (Death)
  Sender: FDA-Public Use
  Company Number: US-INDIVIOR LIMITED-INDV-102851-2017

PATIENT
  Age: 29 Year
  Sex: Male

DRUGS (1)
  1. SUBOXONE [Suspect]
     Active Substance: BUPRENORPHINE HYDROCHLORIDE\NALOXONE HYDROCHLORIDE
     Indication: DRUG USE DISORDER
     Dosage: 8 MG, BID
     Route: 060
     Dates: end: 20170612

REACTIONS (2)
  - Completed suicide [Fatal]
  - Product use issue [Recovered/Resolved]

NARRATIVE: CASE EVENT DATE: 20170612
